FAERS Safety Report 25682301 (Version 2)
Quarter: 2025Q4

REPORT INFORMATION
  Report Type: Spontaneous
  Country: JP (occurrence: JP)
  Receive Date: 20250814
  Receipt Date: 20251009
  Transmission Date: 20260118
  Serious: Yes (Hospitalization)
  Sender: ALEXION PHARMACEUTICALS
  Company Number: JP-AstraZeneca-CH-00927291A

PATIENT
  Age: 77 Year
  Sex: Male
  Weight: 55.5 kg

DRUGS (11)
  1. LOKELMA [Suspect]
     Active Substance: SODIUM ZIRCONIUM CYCLOSILICATE
     Indication: Hyperkalaemia
     Dosage: 10 GRAM, TID
     Dates: start: 20250721, end: 20250723
  2. NICARDIPINE [Suspect]
     Active Substance: NICARDIPINE
     Indication: Hyperkalaemia
     Dosage: 2 MILLIGRAM
  3. NIFEDIPINE [Concomitant]
     Active Substance: NIFEDIPINE
  4. VONOPRAZAN FUMARATE [Concomitant]
     Active Substance: VONOPRAZAN FUMARATE
     Dosage: 10
  5. ASPIRIN [Concomitant]
     Active Substance: ASPIRIN
  6. VILDAGLIPTIN [Concomitant]
     Active Substance: VILDAGLIPTIN
     Dosage: 50
  7. ENTRESTO [Concomitant]
     Active Substance: SACUBITRIL\VALSARTAN
     Dosage: 200
  8. ROSUVASTATIN [Concomitant]
     Active Substance: ROSUVASTATIN
     Dosage: 2.5
  9. RIVAROXABAN [Concomitant]
     Active Substance: RIVAROXABAN
  10. ESAXERENONE [Concomitant]
     Active Substance: ESAXERENONE
  11. METFORMIN [Concomitant]
     Active Substance: METFORMIN HYDROCHLORIDE

REACTIONS (2)
  - Ileus paralytic [Recovered/Resolved]
  - Product residue present [Unknown]

NARRATIVE: CASE EVENT DATE: 20250726
